FAERS Safety Report 24979857 (Version 1)
Quarter: 2025Q1

REPORT INFORMATION
  Report Type: Spontaneous
  Country: JP (occurrence: JP)
  Receive Date: 20250218
  Receipt Date: 20250218
  Transmission Date: 20250409
  Serious: No
  Sender: ALEXION PHARMACEUTICALS
  Company Number: JP-ASTRAZENECA-220046966_020520_P_1

PATIENT
  Age: 23 Year

DRUGS (3)
  1. NEXIUM [Suspect]
     Active Substance: ESOMEPRAZOLE MAGNESIUM
  2. BETAMETHASONE [Suspect]
     Active Substance: BETAMETHASONE
     Route: 065
  3. AMOXICILLIN SODIUM [Suspect]
     Active Substance: AMOXICILLIN SODIUM
     Route: 065

REACTIONS (1)
  - Paracusis [Unknown]
